FAERS Safety Report 24318454 (Version 2)
Quarter: 2024Q4

REPORT INFORMATION
  Report Type: Spontaneous
  Country: CA (occurrence: CA)
  Receive Date: 20240913
  Receipt Date: 20241216
  Transmission Date: 20250114
  Serious: Yes (Hospitalization)
  Sender: PFIZER
  Company Number: CA-PFIZER INC-202400254912

PATIENT
  Age: 82 Year
  Sex: Male

DRUGS (8)
  1. VYNDAMAX [Suspect]
     Active Substance: TAFAMIDIS
     Indication: Cardiac amyloidosis
     Dosage: 61 MG, 1X/DAY
     Route: 048
     Dates: start: 20240721
  2. WARFARIN [Concomitant]
     Active Substance: WARFARIN
     Indication: Atrial fibrillation
  3. OMEPRAZOLE [Concomitant]
     Active Substance: OMEPRAZOLE
     Indication: Gastrooesophageal reflux disease
     Dosage: 20 MG, DAILY
  4. CLONAZEPAM [Concomitant]
     Active Substance: CLONAZEPAM
     Indication: Anxiety
     Dosage: 0.5 MG, 2X/DAY
  5. FUROSEMIDE [Concomitant]
     Active Substance: FUROSEMIDE
     Indication: Hypervolaemia
     Dosage: 40 MG, 2X/DAY
  6. CALCITRIOL [Concomitant]
     Active Substance: CALCITRIOL
     Indication: Peritoneal dialysis
     Dosage: 0.25 MG, 2X/DAY (4 CAPS DAILY, 4 DAYS A WEEK+ 2X DAY 3 DAYS WEEKLY)
  7. CALCITRIOL [Concomitant]
     Active Substance: CALCITRIOL
     Dosage: 4 CAPS DAILY, 4 DAYS A WEEK
  8. CALCITRIOL [Concomitant]
     Active Substance: CALCITRIOL
     Dosage: 4 CAPS DAILY, 4 DAYS A WEEK+ 2X DAY 3 DAYS WEEKLY

REACTIONS (2)
  - Fall [Recovering/Resolving]
  - Hip fracture [Recovering/Resolving]

NARRATIVE: CASE EVENT DATE: 20240101
